FAERS Safety Report 23990703 (Version 1)
Quarter: 2024Q2

REPORT INFORMATION
  Report Type: Spontaneous
  Country: DE (occurrence: DE)
  Receive Date: 20240619
  Receipt Date: 20240619
  Transmission Date: 20240716
  Serious: Yes (Death)
  Sender: FDA-Public Use
  Company Number: DE-BoehringerIngelheim-2024-BI-034678

PATIENT
  Age: 39 Year
  Sex: Male

DRUGS (1)
  1. AFATINIB DIMALEATE [Suspect]
     Active Substance: AFATINIB DIMALEATE
     Indication: Product used for unknown indication

REACTIONS (1)
  - Death [Fatal]
